FAERS Safety Report 5467565-2 (Version None)
Quarter: 2007Q3

REPORT INFORMATION
  Report Type: 
  Country: None (occurrence: None)
  Receive Date: 20070921
  Receipt Date: 20070912
  Transmission Date: 20080115
  Serious: Yes (Other)
  Sender: FDA-Public Use
  Company Number: CHPA2007US09623

PATIENT
  Sex: Male

DRUGS (1)
  1. TRIAMINIC COLD + ALLERGY ORANGE (NCH) (CHLORPHENIRAMINE MALEATE, PSEUD [Suspect]
     Dosage: ONCE/SINGLE

REACTIONS (2)
  - ACCIDENTAL DRUG INTAKE BY CHILD [None]
  - SOMNOLENCE [None]
